FAERS Safety Report 7164444-X (Version None)
Quarter: 2010Q4

REPORT INFORMATION
  Report Type: 
  Country: None (occurrence: None)
  Receive Date: 20101123
  Receipt Date: 20100831
  Transmission Date: 20110411
  Serious: No
  Sender: FDA-Public Use
  Company Number: 018096

PATIENT
  Sex: Male
  Weight: 104.3 kg

DRUGS (3)
  1. CIMZIA [Suspect]
     Indication: CROHN'S DISEASE
     Dosage: 400 MG, MONTHLY, TWO SHOTS SUBCUTANEOUS
     Route: 058
     Dates: start: 20100709
  2. AZATHIOPRINE [Concomitant]
  3. VITAMINS NOS [Concomitant]

REACTIONS (2)
  - DYSPNOEA [None]
  - INFLUENZA LIKE ILLNESS [None]
